FAERS Safety Report 7482926-8 (Version None)
Quarter: 2011Q2

REPORT INFORMATION
  Report Type: 
  Country: None (occurrence: None)
  Receive Date: 20110516
  Receipt Date: 20110203
  Transmission Date: 20111010
  Serious: No
  Sender: FDA-Public Use
  Company Number: US-BAYER-2011-014570

PATIENT
  Age: 38 Year
  Sex: Female
  Weight: 113 kg

DRUGS (1)
  1. ALEVE (CAPLET) [Suspect]
     Dosage: TOOK 2 IN THE MORNING AND THEN TOOK 3 MORE, BOTTLE COUNT 100S
     Route: 048
     Dates: start: 20110203

REACTIONS (1)
  - NO ADVERSE EVENT [None]
